FAERS Safety Report 5913539-4 (Version None)
Quarter: 2008Q4

REPORT INFORMATION
  Report Type: 
  Country: None (occurrence: None)
  Receive Date: 20081009
  Receipt Date: 20080925
  Transmission Date: 20090506
  Serious: No
  Sender: FDA-Public Use
  Company Number: US-BAYER-200812145BCC

PATIENT
  Age: 27 Year
  Sex: Female
  Weight: 100 kg

DRUGS (3)
  1. ALEVE [Suspect]
     Indication: NASOPHARYNGITIS
     Route: 048
     Dates: start: 20040101
  2. ALEVE [Suspect]
     Route: 048
     Dates: start: 20071001
  3. BIRTH CONTROL [Concomitant]

REACTIONS (2)
  - DIZZINESS [None]
  - FEELING JITTERY [None]
